FAERS Safety Report 16439147 (Version 13)
Quarter: 2020Q2

REPORT INFORMATION
  Report Type: Spontaneous
  Country: US (occurrence: US)
  Receive Date: 20190617
  Receipt Date: 20200612
  Transmission Date: 20200713
  Serious: Yes (Other)
  Sender: FDA-Public Use
  Company Number: US-PFIZER INC-2019257351

PATIENT
  Age: 94 Year
  Sex: Female
  Weight: 57 kg

DRUGS (4)
  1. PREMARIN [Suspect]
     Active Substance: ESTROGENS, CONJUGATED
     Indication: VULVAL DISORDER
  2. PREMARIN [Suspect]
     Active Substance: ESTROGENS, CONJUGATED
     Indication: VULVAL DISORDER
     Dosage: 0.5 G, DAILY (EVERY NIGHT)
     Route: 067
     Dates: start: 20170831
  3. LISINOPRIL. [Concomitant]
     Active Substance: LISINOPRIL
     Indication: HYPERTENSION
     Dosage: UNK
  4. PREMARIN [Suspect]
     Active Substance: ESTROGENS, CONJUGATED
     Indication: VULVAL DISORDER

REACTIONS (9)
  - Glaucoma [Not Recovered/Not Resolved]
  - Hypoacusis [Unknown]
  - Body height decreased [Unknown]
  - Weight decreased [Unknown]
  - Macular degeneration [Not Recovered/Not Resolved]
  - Gait disturbance [Unknown]
  - Dysphonia [Unknown]
  - Weight increased [Unknown]
  - Confusional state [Unknown]

NARRATIVE: CASE EVENT DATE: 201804
